FAERS Safety Report 5897340-6 (Version None)
Quarter: 2008Q3

REPORT INFORMATION
  Report Type: 
  Country: None (occurrence: None)
  Receive Date: 20080925
  Receipt Date: 20071113
  Transmission Date: 20090109
  Serious: No
  Sender: FDA-Public Use
  Company Number: A0694240A

PATIENT
  Sex: Female

DRUGS (3)
  1. EPZICOM [Suspect]
     Indication: HIV INFECTION
     Route: 048
     Dates: end: 20070701
  2. LEXIVA [Suspect]
     Indication: HIV INFECTION
     Route: 048
  3. NORVIR [Suspect]
     Indication: HIV INFECTION
     Route: 048

REACTIONS (13)
  - ABDOMINAL PAIN UPPER [None]
  - APHONIA [None]
  - COUGH [None]
  - DIARRHOEA [None]
  - DIZZINESS [None]
  - DYSPNOEA [None]
  - FATIGUE [None]
  - HEADACHE [None]
  - INSOMNIA [None]
  - NAUSEA [None]
  - OROPHARYNGEAL PAIN [None]
  - PYREXIA [None]
  - VOMITING [None]
